FAERS Safety Report 18508737 (Version 2)
Quarter: 2020Q4

REPORT INFORMATION
  Report Type: Other
  Country: US (occurrence: US)
  Receive Date: 20201117
  Receipt Date: 20201118
  Transmission Date: 20210114
  Serious: No
  Sender: FDA-Public Use
  Company Number: US-ROCHE-2714790

PATIENT
  Age: 32 Year
  Sex: Female

DRUGS (2)
  1. OCREVUS [Suspect]
     Active Substance: OCRELIZUMAB
     Dosage: DATE OF SUBSEQUENT OCRELIZUMAB 600 MG DOSE: 25/FEB/2019, 12/AUG/2019, 27/JAN/2020
     Route: 042
     Dates: start: 20180820
  2. OCREVUS [Suspect]
     Active Substance: OCRELIZUMAB
     Indication: RELAPSING MULTIPLE SCLEROSIS
     Dosage: DAY 1 AND DAY 15?DATE OF SUBSEQUENT OCRELIZUMAB 300 MG DOSE: 05/MAR/2018
     Route: 042
     Dates: start: 20180219

REACTIONS (1)
  - COVID-19 [Unknown]

NARRATIVE: CASE EVENT DATE: 20201026
